FAERS Safety Report 7236865-8 (Version None)
Quarter: 2011Q1

REPORT INFORMATION
  Report Type: 
  Country: None (occurrence: None)
  Receive Date: 20110120
  Receipt Date: 20110117
  Transmission Date: 20110831
  Serious: Yes (Hospitalization)
  Sender: FDA-Public Use
  Company Number: JP-MERCK-1012USA01942

PATIENT
  Age: 82 Year
  Sex: Female

DRUGS (6)
  1. JANUVIA [Suspect]
     Indication: DIABETES MELLITUS
     Route: 048
     Dates: start: 20100210, end: 20101221
  2. ARICEPT [Concomitant]
     Route: 048
  3. BLOPRESS [Concomitant]
     Route: 048
  4. EPADEL [Concomitant]
     Route: 048
  5. TATHION [Concomitant]
     Route: 065
  6. ACTONEL [Concomitant]
     Route: 048

REACTIONS (1)
  - INTESTINAL OBSTRUCTION [None]
